FAERS Safety Report 8114049-9 (Version None)
Quarter: 2012Q1

REPORT INFORMATION
  Report Type: 
  Country: None (occurrence: None)
  Receive Date: 20120203
  Receipt Date: 20120127
  Transmission Date: 20120608
  Serious: Yes (Other)
  Sender: FDA-Public Use
  Company Number: FR-ASTRAZENECA-2012SE06098

PATIENT
  Age: 80 Year
  Sex: Male
  Weight: 73 kg

DRUGS (7)
  1. FELODIPINE [Suspect]
     Indication: HYPERTENSION
     Route: 048
  2. SORAFENIB [Interacting]
     Indication: HEPATIC NEOPLASM MALIGNANT
     Route: 065
     Dates: start: 20080601
  3. ADEFOVIR DIPIVOXIL [Concomitant]
  4. LAMIVUDINE [Concomitant]
  5. FUROSEMIDE [Concomitant]
  6. PROPRANOLOL [Concomitant]
  7. SORAFENIB [Interacting]
     Route: 065

REACTIONS (6)
  - DECREASED APPETITE [None]
  - DIARRHOEA [None]
  - DYSPHONIA [None]
  - DRUG INTERACTION [None]
  - WEIGHT DECREASED [None]
  - ASTHENIA [None]
